FAERS Safety Report 23451848 (Version 1)
Quarter: 2024Q1

REPORT INFORMATION
  Report Type: Spontaneous
  Country: US (occurrence: US)
  Receive Date: 20240129
  Receipt Date: 20240129
  Transmission Date: 20240409
  Serious: No
  Sender: FDA-Public Use
  Company Number: US-SANOFI-01914459

PATIENT
  Age: 8 Year
  Sex: Female

DRUGS (1)
  1. LANTUS SOLOSTAR [Suspect]
     Active Substance: INSULIN GLARGINE
     Indication: Type 1 diabetes mellitus
     Dosage: 1 UNIT PRN AND DRUG TREATMENT DURATION:UNKNOWN AKE 1 UNIT AS NEEDED, UP TO 25 UNITS DAILY

REACTIONS (3)
  - Off label use [Unknown]
  - Product storage error [Unknown]
  - Intentional product misuse [Unknown]
